FAERS Safety Report 4350522-7 (Version None)
Quarter: 2004Q2

REPORT INFORMATION
  Report Type: 
  Country: None (occurrence: None)
  Receive Date: 20040429
  Receipt Date: 20040429
  Transmission Date: 20050107
  Serious: Yes (Hospitalization)
  Sender: FDA-Public Use
  Company Number: None

PATIENT
  Age: 75 Year
  Sex: Female
  Weight: 91 kg

DRUGS (6)
  1. QUELICIN [Suspect]
     Indication: ELECTROCONVULSIVE THERAPY
     Dosage: 140 MG ONCE INTRAVENOUS
     Route: 042
     Dates: start: 20040303, end: 20040303
  2. QUELICIN [Suspect]
     Indication: NEUROMUSCULAR BLOCKADE
     Dosage: 140 MG ONCE INTRAVENOUS
     Route: 042
     Dates: start: 20040303, end: 20040303
  3. THIOPENTAL SODIUM [Concomitant]
  4. GLYCOPYRROLATE [Concomitant]
  5. ASPIRIN [Concomitant]
  6. LOPRESSOR [Concomitant]

REACTIONS (1)
  - MUSCLE SPASMS [None]
